FAERS Safety Report 7737646-9 (Version None)
Quarter: 2011Q3

REPORT INFORMATION
  Report Type: 
  Country: None (occurrence: None)
  Receive Date: 20110902
  Receipt Date: 20110826
  Transmission Date: 20111222
  Serious: Yes (Life-Threatening, Hospitalization, Other)
  Sender: FDA-Public Use
  Company Number: ABR_00172_2011

PATIENT
  Sex: Male
  Weight: 0.9 kg

DRUGS (16)
  1. RANITIDINE [Concomitant]
  2. STEINHARD HYDROCHLOROTHIAZIDE [Concomitant]
  3. AMILORIDE HYDROCHLORIDE [Concomitant]
  4. CAFFEINE [Concomitant]
  5. DEXAMETHASONE [Concomitant]
  6. FOLIC ACID [Concomitant]
  7. ERYPED [Suspect]
     Indication: GASTROINTESTINAL MOTILITY DISORDER
     Dosage: 3 MG/KG, 2.61 MG, ORAL
     Route: 048
     Dates: start: 20110530, end: 20110603
  8. ERYPED [Suspect]
     Indication: WEIGHT GAIN POOR
     Dosage: 3 MG/KG, 2.61 MG, ORAL
     Route: 048
     Dates: start: 20110530, end: 20110603
  9. SPIRONOLACTONE [Concomitant]
  10. DALIVIT [Concomitant]
  11. SODIUM PHOSPHATE MONOBASIC (ANHYDRATE) [Concomitant]
  12. SODIUM  FEREDETATE [Concomitant]
  13. FOLLICARE NUTRITIONAL SUPPLEMENT [Concomitant]
  14. NYSTATIN [Concomitant]
  15. FUROSEMIDE [Concomitant]
  16. GAVISCON [Concomitant]

REACTIONS (4)
  - BLOOD CREATININE INCREASED [None]
  - NECROTISING COLITIS [None]
  - FUNCTIONAL GASTROINTESTINAL DISORDER [None]
  - INTESTINAL DILATATION [None]
